FAERS Safety Report 5025661-8 (Version None)
Quarter: 2006Q2

REPORT INFORMATION
  Report Type: 
  Country: None (occurrence: None)
  Receive Date: 20060614
  Receipt Date: 20060215
  Transmission Date: 20061013
  Serious: Yes (Hospitalization)
  Sender: FDA-Public Use
  Company Number: PHNU2006DE00955

PATIENT
  Sex: Male

DRUGS (4)
  1. CERTICAN [Suspect]
     Indication: HEART TRANSPLANT
     Dosage: 1.25MG/DAY
     Route: 048
     Dates: start: 20060121
  2. SANDIMMUNE [Suspect]
     Indication: HEART TRANSPLANT
     Dates: start: 20051204
  3. CELLCEPT [Suspect]
     Indication: HEART TRANSPLANT
  4. DECORTIN [Concomitant]
     Indication: HEART TRANSPLANT

REACTIONS (3)
  - BLOOD BILIRUBIN INCREASED [None]
  - CHOLANGITIS SCLEROSING [None]
  - CONDITION AGGRAVATED [None]
